FAERS Safety Report 25048049 (Version 3)
Quarter: 2025Q2

REPORT INFORMATION
  Report Type: Spontaneous
  Country: JM (occurrence: JM)
  Receive Date: 20250306
  Receipt Date: 20250409
  Transmission Date: 20250716
  Serious: No
  Sender: JOHNSON AND JOHNSON
  Company Number: JM-JNJFOC-20250259392

PATIENT
  Age: 60 Year
  Sex: Female
  Weight: 90.4 kg

DRUGS (1)
  1. SIMPONI [Suspect]
     Active Substance: GOLIMUMAB
     Indication: Spondylitis
     Route: 058
     Dates: start: 20220627

REACTIONS (2)
  - Product dose omission issue [Unknown]
  - Device issue [Unknown]

NARRATIVE: CASE EVENT DATE: 20250218
